FAERS Safety Report 23996135 (Version 1)
Quarter: 2024Q2

REPORT INFORMATION
  Report Type: Spontaneous
  Country: US (occurrence: None)
  Receive Date: 20240620
  Receipt Date: 20240620
  Transmission Date: 20240716
  Serious: Yes (Hospitalization)
  Sender: FDA-Public Use
  Company Number: None

PATIENT
  Age: 64 Year
  Sex: Male
  Weight: 104 kg

DRUGS (5)
  1. FLUOROURACIL [Suspect]
     Active Substance: FLUOROURACIL
     Dates: end: 20240603
  2. IRINOTECAN [Suspect]
     Active Substance: IRINOTECAN
     Dates: end: 20240603
  3. LEUCOVORIN CALCIUM [Suspect]
     Active Substance: LEUCOVORIN CALCIUM
     Dates: end: 20240603
  4. NIVOLUMAB [Concomitant]
     Active Substance: NIVOLUMAB
     Dates: end: 20240603
  5. HEPARIN [Concomitant]

REACTIONS (5)
  - Pulmonary embolism [None]
  - Gastrointestinal haemorrhage [None]
  - Oesophageal stenosis [None]
  - Mass [None]
  - Ulcer [None]

NARRATIVE: CASE EVENT DATE: 20240612
